FAERS Safety Report 7659245-X (Version None)
Quarter: 2011Q3

REPORT INFORMATION
  Report Type: 
  Country: None (occurrence: None)
  Receive Date: 20110805
  Receipt Date: 20110801
  Transmission Date: 20111222
  Serious: Yes (Death, Hospitalization)
  Sender: FDA-Public Use
  Company Number: JP-ROCHE-763254

PATIENT
  Sex: Male

DRUGS (40)
  1. TOCILIZUMAB [Suspect]
     Route: 041
     Dates: start: 20090316, end: 20090316
  2. TOCILIZUMAB [Suspect]
     Route: 041
     Dates: start: 20100222, end: 20100222
  3. RIMATIL [Concomitant]
     Route: 048
     Dates: start: 20100216, end: 20100815
  4. PANCREAZE [Concomitant]
     Dosage: DRUG: EXCELASE(SANACTASE COMBINED DRUG)
     Route: 048
     Dates: start: 20100216, end: 20100815
  5. TOCILIZUMAB [Suspect]
     Route: 041
     Dates: start: 20091130, end: 20091130
  6. FOLIC ACID [Concomitant]
     Route: 048
  7. SULFASALAZINE [Concomitant]
     Dosage: DRUG: ASASURFAN(SALAZOSULFAPYRIDINE)
     Route: 048
     Dates: start: 20100216, end: 20100815
  8. SODIUM AUROTHIOMALATE [Concomitant]
     Route: 030
     Dates: start: 20100216, end: 20100627
  9. EVAMYL [Concomitant]
     Route: 048
     Dates: start: 20100716, end: 20100815
  10. TOCILIZUMAB [Suspect]
     Indication: RHEUMATOID ARTHRITIS
     Route: 041
     Dates: start: 20090216, end: 20090216
  11. TOCILIZUMAB [Suspect]
     Route: 041
     Dates: start: 20090413, end: 20090413
  12. GASMOTIN [Concomitant]
     Dosage: FORM: PERORAL AGENT, DRUG: GASMOTIN(MOSAPRIDE CITRATE HYDRATE)
     Route: 048
     Dates: start: 20100216, end: 20100815
  13. LEVOFLOXACIN [Concomitant]
     Dosage: DRUG: CRAVIT (LEVOFLOXACIN HYDRATE)
     Route: 048
     Dates: start: 20100216, end: 20100630
  14. TOCILIZUMAB [Suspect]
     Route: 041
     Dates: start: 20090803, end: 20090803
  15. PREDNISOLONE [Concomitant]
     Route: 048
     Dates: start: 20100803, end: 20100815
  16. FOLIC ACID [Concomitant]
     Route: 048
     Dates: start: 20100216, end: 20100726
  17. RHEUMATREX [Concomitant]
     Route: 048
  18. TOCILIZUMAB [Suspect]
     Route: 041
     Dates: start: 20090706, end: 20090706
  19. TOCILIZUMAB [Suspect]
     Route: 041
     Dates: start: 20090928, end: 20090928
  20. TOCILIZUMAB [Suspect]
     Route: 041
     Dates: start: 20091228, end: 20091228
  21. PREDNISOLONE [Concomitant]
     Route: 048
     Dates: start: 20100216, end: 20100815
  22. ZOLPIDEM TARTRATE [Concomitant]
     Dosage: DRUG: MYSLEE(ZOLPIDEM TARTRATE)
     Route: 048
     Dates: start: 20100216, end: 20100715
  23. MUCOSTA [Concomitant]
     Route: 048
     Dates: start: 20100216, end: 20100815
  24. LANSOPRAZOLE [Concomitant]
     Route: 048
     Dates: start: 20100216, end: 20100815
  25. METHOTREXATE [Concomitant]
     Route: 048
     Dates: start: 20100216, end: 20100726
  26. TOCILIZUMAB [Suspect]
     Route: 041
     Dates: start: 20090511, end: 20090511
  27. TOCILIZUMAB [Suspect]
     Route: 041
     Dates: start: 20090608, end: 20090608
  28. OMEPRAZOLE [Concomitant]
     Route: 048
     Dates: start: 20100216, end: 20100627
  29. MUCOSOLVAN [Concomitant]
     Dosage: DRUG: MUCOSOLVAN (AMBROXOL HYDROCHLORIDE)
     Route: 048
     Dates: start: 20100216, end: 20100815
  30. MUCODYNE [Concomitant]
     Route: 048
     Dates: start: 20100216, end: 20100815
  31. TOCILIZUMAB [Suspect]
     Route: 041
     Dates: start: 20100412, end: 20100412
  32. TOCILIZUMAB [Suspect]
     Route: 041
     Dates: start: 20100517, end: 20100517
  33. MACMET [Concomitant]
     Route: 048
     Dates: start: 20100216, end: 20100627
  34. LAC-B [Concomitant]
     Route: 048
     Dates: start: 20100702, end: 20100815
  35. TOCILIZUMAB [Suspect]
     Route: 041
     Dates: start: 20090831, end: 20090831
  36. TOCILIZUMAB [Suspect]
     Route: 041
     Dates: start: 20091026, end: 20091026
  37. TOCILIZUMAB [Suspect]
     Route: 041
     Dates: start: 20100125, end: 20100125
  38. TOCILIZUMAB [Suspect]
     Route: 041
     Dates: start: 20100315, end: 20100315
  39. AZULFIDINE [Concomitant]
     Route: 048
  40. PREDNISOLONE [Concomitant]
     Route: 048

REACTIONS (12)
  - DECREASED APPETITE [None]
  - MALNUTRITION [None]
  - CARDIAC ARREST [None]
  - PROTEIN TOTAL DECREASED [None]
  - GASTRIC POLYPS [None]
  - PLEURISY [None]
  - RESPIRATORY ARREST [None]
  - OESOPHAGEAL CANDIDIASIS [None]
  - GASTRITIS [None]
  - PLEURAL EFFUSION [None]
  - FALL [None]
  - SPINAL COMPRESSION FRACTURE [None]
